FAERS Safety Report 7082130-1 (Version None)
Quarter: 2010Q4

REPORT INFORMATION
  Report Type: 
  Country: None (occurrence: None)
  Receive Date: 20101103
  Receipt Date: 20101101
  Transmission Date: 20110411
  Serious: No
  Sender: FDA-Public Use
  Company Number: US-PFIZER INC-2010138949

PATIENT
  Sex: Male
  Weight: 86.168 kg

DRUGS (3)
  1. LIPITOR [Suspect]
     Indication: BLOOD CHOLESTEROL INCREASED
     Dosage: 10 MG, DAILY
     Route: 048
     Dates: start: 20090101
  2. VITAMINS [Concomitant]
     Dosage: UNK
  3. LOVAZA [Concomitant]
     Dosage: UNK

REACTIONS (1)
  - MALAISE [None]
